FAERS Safety Report 16483440 (Version 1)
Quarter: 2019Q2

REPORT INFORMATION
  Report Type: Report from Study
  Country: IL (occurrence: IL)
  Receive Date: 20190627
  Receipt Date: 20190627
  Transmission Date: 20190711
  Serious: Yes (Hospitalization, Other)
  Sender: FDA-Public Use
  Company Number: IL-JNJFOC-20190629500

PATIENT
  Age: 44 Year
  Sex: Female

DRUGS (1)
  1. GOLIMUMAB SOLUTION FOR INJECTION [Suspect]
     Active Substance: GOLIMUMAB
     Indication: PSORIATIC ARTHROPATHY
     Route: 058
     Dates: start: 20160508

REACTIONS (1)
  - Salpingectomy [Unknown]

NARRATIVE: CASE EVENT DATE: 20190613
